FAERS Safety Report 9792180 (Version 1)
Quarter: 2013Q4

REPORT INFORMATION
  Report Type: Spontaneous
  Country: US (occurrence: None)
  Receive Date: 20131230
  Receipt Date: 20131230
  Transmission Date: 20140711
  Serious: Yes (Other)
  Sender: FDA-Public Use
  Company Number: CA13-0641

PATIENT
  Age: 43 Year
  Sex: Female
  Weight: 81 kg

DRUGS (2)
  1. ENOXAPARIN SODIUM INJ.,UNKNOWN STRENGTH (AMPHASTAR) [Suspect]
     Indication: THROMBOSIS
     Dates: start: 20131216
  2. VARIOUS CANCER MEDICATION [Concomitant]

REACTIONS (6)
  - Nausea [None]
  - Blood pressure increased [None]
  - Anxiety [None]
  - Tremor [None]
  - Device issue [None]
  - Incorrect dose administered by device [None]
